FAERS Safety Report 8219526-8 (Version None)
Quarter: 2012Q1

REPORT INFORMATION
  Report Type: 
  Country: None (occurrence: None)
  Receive Date: 20120319
  Receipt Date: 20120312
  Transmission Date: 20120608
  Serious: Yes (Other)
  Sender: FDA-Public Use
  Company Number: PHHY2012KR021835

PATIENT
  Age: 64 Year
  Sex: Female

DRUGS (3)
  1. TAMIFLU [Interacting]
     Dosage: 150 MG, QD
  2. LEVOFLOXACIN [Concomitant]
  3. WARFARIN SODIUM [Suspect]
     Indication: ATRIAL FIBRILLATION

REACTIONS (7)
  - COUGH [None]
  - DRUG INTERACTION [None]
  - UPPER RESPIRATORY TRACT INFECTION [None]
  - INTERNATIONAL NORMALISED RATIO INCREASED [None]
  - RHINORRHOEA [None]
  - PYREXIA [None]
  - H1N1 INFLUENZA [None]
